FAERS Safety Report 24547989 (Version 6)
Quarter: 2025Q3

REPORT INFORMATION
  Report Type: Report from Study
  Country: US (occurrence: US)
  Receive Date: 20241025
  Receipt Date: 20250814
  Transmission Date: 20251020
  Serious: Yes (Hospitalization, Other)
  Sender: INSMED
  Company Number: US-INSMED, INC.-2024-04125-US

PATIENT
  Sex: Female

DRUGS (2)
  1. ARIKAYCE [Suspect]
     Active Substance: AMIKACIN
     Indication: Mycobacterium avium complex infection
     Dosage: 590 MILLIGRAM, QD
     Route: 055
     Dates: start: 202401, end: 202410
  2. ARIKAYCE [Suspect]
     Active Substance: AMIKACIN
     Route: 055
     Dates: start: 20241022, end: 202507

REACTIONS (6)
  - Surgery [Unknown]
  - Hospitalisation [Unknown]
  - Nasal crusting [Unknown]
  - Epistaxis [Recovered/Resolved]
  - Oropharyngeal discomfort [Unknown]
  - Therapy interrupted [Unknown]
